FAERS Safety Report 12055658 (Version 3)
Quarter: 2016Q1

REPORT INFORMATION
  Report Type: Report from Study
  Country: US (occurrence: US)
  Receive Date: 20160209
  Receipt Date: 20160317
  Transmission Date: 20160526
  Serious: Yes (Hospitalization, Other)
  Sender: FDA-Public Use
  Company Number: US-BRISTOL-MYERS SQUIBB COMPANY-BMS-2016-005437

PATIENT
  Age: 67 Year
  Sex: Male
  Weight: 73.8 kg

DRUGS (5)
  1. IPILIMUMAB [Suspect]
     Active Substance: IPILIMUMAB
     Indication: NON-HODGKIN^S LYMPHOMA
     Dosage: 3 MG/KG, UNK
     Route: 042
     Dates: start: 20151228, end: 20151228
  2. RITUXIMAB [Suspect]
     Active Substance: RITUXIMAB
     Dosage: 2800 MG, UNK
     Route: 065
     Dates: start: 20160210, end: 20160210
  3. IPILIMUMAB [Suspect]
     Active Substance: IPILIMUMAB
     Dosage: 1 MG/KG, Q3WK
     Route: 042
     Dates: start: 20151228
  4. IPILIMUMAB [Suspect]
     Active Substance: IPILIMUMAB
     Dosage: 438 MG, UNK
     Route: 065
     Dates: start: 20160210
  5. RITUXIMAB [Suspect]
     Active Substance: RITUXIMAB
     Indication: NON-HODGKIN^S LYMPHOMA
     Dosage: 375 MG/M2, UNK
     Route: 042
     Dates: start: 20151228, end: 20160104

REACTIONS (6)
  - Pleural effusion [Recovered/Resolved]
  - Atrial flutter [Recovering/Resolving]
  - Respiratory failure [Recovering/Resolving]
  - Tachycardia [Recovering/Resolving]
  - Pulmonary hypertension [Recovering/Resolving]
  - Pneumonia [Unknown]

NARRATIVE: CASE EVENT DATE: 20160115
